FAERS Safety Report 24009651 (Version 1)
Quarter: 2024Q2

REPORT INFORMATION
  Report Type: Report from Study
  Country: US (occurrence: US)
  Receive Date: 20240625
  Receipt Date: 20240625
  Transmission Date: 20240715
  Serious: Yes (Other)
  Sender: FDA-Public Use
  Company Number: US-ABBVIE-5811638

PATIENT
  Age: 57 Year
  Sex: Female

DRUGS (1)
  1. RINVOQ [Suspect]
     Active Substance: UPADACITINIB
     Indication: Rheumatoid arthritis
     Route: 048
     Dates: start: 20220325

REACTIONS (5)
  - Knee operation [Recovering/Resolving]
  - Oedema peripheral [Recovering/Resolving]
  - Drug hypersensitivity [Recovering/Resolving]
  - Hepatic enzyme increased [Unknown]
  - Allergic oedema [Recovering/Resolving]

NARRATIVE: CASE EVENT DATE: 20240605
